FAERS Safety Report 8857636 (Version 2)
Quarter: 2013Q2

REPORT INFORMATION
  Report Type: Report from Study
  Country: DE (occurrence: DE)
  Receive Date: 20121024
  Receipt Date: 20130515
  Transmission Date: 20140414
  Serious: Yes (Disabling)
  Sender: FDA-Public Use
  Company Number: DE-ROCHE-1148139

PATIENT
  Age: 63 Year
  Sex: Female
  Weight: 97 kg

DRUGS (8)
  1. MYOCET [Suspect]
     Indication: BREAST CANCER
     Dosage: DATE OF LAST DOSE PRIOR TO SAE: 12/SEP/2012
     Route: 042
     Dates: start: 20120724, end: 20120912
  2. MYOCET [Suspect]
     Route: 042
     Dates: start: 20121001
  3. TRASTUZUMAB [Suspect]
     Indication: BREAST CANCER
     Dosage: DATE OF LAST DOSE PRIOR TO SAE: 05/SEP/2012
     Route: 042
     Dates: start: 20120724
  4. LAPATINIB [Suspect]
     Indication: BREAST CANCER
     Dosage: DATE OF LAST DOSE PRIOR TO SAE: 17/SEP/2012
     Route: 048
     Dates: start: 20120724
  5. PACLITAXEL [Suspect]
     Indication: BREAST CANCER
     Dosage: DATE OF LAST DOSE PRIOR TO SAE: 12/SEP/2012
     Route: 042
     Dates: start: 20120724, end: 20120912
  6. PACLITAXEL [Suspect]
     Route: 042
     Dates: start: 20121001
  7. LISINOPRIL [Concomitant]
  8. BISOPROLOL [Concomitant]

REACTIONS (1)
  - Palmar-plantar erythrodysaesthesia syndrome [Recovered/Resolved]
